FAERS Safety Report 13700301 (Version 1)
Quarter: 2017Q2

REPORT INFORMATION
  Report Type: Other
  Country: CA (occurrence: CA)
  Receive Date: 20170629
  Receipt Date: 20170629
  Transmission Date: 20170830
  Serious: Yes (Hospitalization, Other)
  Sender: FDA-Public Use
  Company Number: CA-APOTEX-2017AP013303

PATIENT
  Age: 26 Year
  Sex: Male
  Weight: 77 kg

DRUGS (3)
  1. APO-OLANZAPINE [Suspect]
     Active Substance: OLANZAPINE
     Indication: PRODUCT USED FOR UNKNOWN INDICATION
     Dosage: 20 MG, PRN
     Route: 048
  2. RISPERDAL [Suspect]
     Active Substance: RISPERIDONE
     Indication: SCHIZOPHRENIA
     Dosage: 4 MG, BID
     Route: 048
  3. PALIPERIDONE PALMITATE [Suspect]
     Active Substance: PALIPERIDONE PALMITATE
     Indication: SCHIZOPHRENIA
     Dosage: 75 MG, 1 EVERY 28 DAYS
     Route: 030

REACTIONS (6)
  - Altered state of consciousness [Unknown]
  - Total lung capacity decreased [Unknown]
  - Incorrect dose administered [Unknown]
  - Drug screen positive [Unknown]
  - Off label use [Unknown]
  - Rhabdomyolysis [Unknown]
